FAERS Safety Report 12602033 (Version 1)
Quarter: 2016Q3

REPORT INFORMATION
  Report Type: Spontaneous
  Country: US (occurrence: US)
  Receive Date: 20160728
  Receipt Date: 20160728
  Transmission Date: 20161109
  Serious: No
  Sender: FDA-Public Use
  Company Number: US-PFIZER INC-2016325636

PATIENT
  Sex: Female

DRUGS (1)
  1. ERYTHROMYCIN. [Suspect]
     Active Substance: ERYTHROMYCIN
     Dosage: UNK

REACTIONS (6)
  - Heart rate increased [Unknown]
  - Palpitations [Unknown]
  - Pruritus [Unknown]
  - Dyspnoea [Unknown]
  - Drug hypersensitivity [Not Recovered/Not Resolved]
  - Rash [Unknown]
